FAERS Safety Report 22265312 (Version 1)
Quarter: 2023Q2

REPORT INFORMATION
  Report Type: Spontaneous
  Country: US (occurrence: None)
  Receive Date: 20230426
  Receipt Date: 20230426
  Transmission Date: 20230721
  Serious: No
  Sender: FDA-Public Use
  Company Number: None

PATIENT
  Sex: Male

DRUGS (1)
  1. XELJANZ [Suspect]
     Active Substance: TOFACITINIB CITRATE
     Indication: Colitis ulcerative
     Dosage: 1 TABLET 2 TIMES A DAY BY MOUTH?
     Route: 048
     Dates: start: 20220627

REACTIONS (2)
  - Colitis ulcerative [None]
  - Drug ineffective [None]
